FAERS Safety Report 7256477-X (Version None)
Quarter: 2011Q1

REPORT INFORMATION
  Report Type: 
  Country: None (occurrence: None)
  Receive Date: 20110129
  Receipt Date: 20100804
  Transmission Date: 20110831
  Serious: No
  Sender: FDA-Public Use
  Company Number: US-ABBOTT-10P-163-0662118-00

PATIENT
  Sex: Female

DRUGS (2)
  1. UNKNOWN SULFA MEDICATION [Concomitant]
     Indication: ARTHRITIS
  2. HUMIRA [Suspect]
     Indication: RHEUMATOID ARTHRITIS
     Dates: start: 20090701

REACTIONS (3)
  - HEADACHE [None]
  - NASAL CONGESTION [None]
  - MIGRAINE [None]
